FAERS Safety Report 5372836-4 (Version None)
Quarter: 2007Q2

REPORT INFORMATION
  Report Type: 
  Country: None (occurrence: None)
  Receive Date: 20070627
  Receipt Date: 20070619
  Transmission Date: 20071010
  Serious: Yes (Other)
  Sender: FDA-Public Use
  Company Number: US-PFIZER INC-2007050237

PATIENT
  Sex: Female
  Weight: 62.1 kg

DRUGS (4)
  1. NORVASC [Suspect]
     Indication: HYPERTENSION
  2. HYDROCHLOROTHIAZIDE [Concomitant]
  3. LISINOPRIL [Concomitant]
  4. LIPITOR [Concomitant]

REACTIONS (6)
  - ATRIAL TACHYCARDIA [None]
  - DIZZINESS [None]
  - FLUID RETENTION [None]
  - PANIC ATTACK [None]
  - STRESS [None]
  - WRIST SURGERY [None]
